FAERS Safety Report 5307620-0 (Version None)
Quarter: 2007Q2

REPORT INFORMATION
  Report Type: 
  Country: None (occurrence: None)
  Receive Date: 20070425
  Receipt Date: 20070413
  Transmission Date: 20071010
  Serious: Yes (Other)
  Sender: FDA-Public Use
  Company Number: US-PFIZER INC-2007029968

PATIENT
  Sex: Female
  Weight: 76.2 kg

DRUGS (7)
  1. CHANTIX [Suspect]
     Indication: SMOKING CESSATION THERAPY
     Dates: start: 20070201, end: 20070401
  2. PREDNISONE TAB [Suspect]
     Indication: HYPERSENSITIVITY
     Dates: start: 20070401
  3. BENADRYL [Suspect]
     Indication: URTICARIA
     Dates: start: 20070402
  4. BENADRYL [Suspect]
     Indication: PRURITUS
  5. GLUCOPHAGE [Concomitant]
  6. VALSARTAN [Concomitant]
  7. RED YEAST RICE [Concomitant]
     Indication: BLOOD CHOLESTEROL INCREASED

REACTIONS (9)
  - DRUG INEFFECTIVE [None]
  - FEELING ABNORMAL [None]
  - HYPERSENSITIVITY [None]
  - INFLUENZA [None]
  - NASOPHARYNGITIS [None]
  - PRURITUS [None]
  - THROAT IRRITATION [None]
  - URTICARIA [None]
  - WEIGHT INCREASED [None]
